FAERS Safety Report 21140963 (Version 1)
Quarter: 2022Q3

REPORT INFORMATION
  Report Type: Spontaneous
  Country: US (occurrence: None)
  Receive Date: 20220728
  Receipt Date: 20220728
  Transmission Date: 20221027
  Serious: No
  Sender: FDA-Public Use
  Company Number: US-ROCHE-2974191

PATIENT
  Sex: Male

DRUGS (1)
  1. TNKASE [Suspect]
     Active Substance: TENECTEPLASE
     Indication: Pulmonary embolism
     Dosage: ONE TIME DOSE, ONGOING: NO
     Route: 042

REACTIONS (2)
  - Incorrect dose administered [Unknown]
  - No adverse event [Unknown]
